FAERS Safety Report 8930451 (Version 2)
Quarter: 2012Q4

REPORT INFORMATION
  Report Type: 
  Country: FR (occurrence: FR)
  Receive Date: 20121128
  Receipt Date: 20121217
  Transmission Date: 20130627
  Serious: Yes (Other)
  Sender: FDA-Public Use
  Company Number: FR-ROCHE-1160523

PATIENT
  Age: 16 Year
  Sex: Female

DRUGS (7)
  1. XOLAIR [Suspect]
     Indication: ASTHMA
     Route: 058
     Dates: start: 20110530
  2. XOLAIR [Suspect]
     Route: 058
     Dates: start: 20121105, end: 20121105
  3. CURACNE [Concomitant]
  4. JASMINELLE [Concomitant]
  5. DIPROSONE [Concomitant]
  6. AERIUS [Concomitant]
  7. ATARAX [Concomitant]

REACTIONS (2)
  - Toxicity to various agents [Not Recovered/Not Resolved]
  - Erythema multiforme [Recovered/Resolved]
